FAERS Safety Report 20384943 (Version 1)
Quarter: 2022Q1

REPORT INFORMATION
  Report Type: Spontaneous
  Country: US (occurrence: None)
  Receive Date: 20220127
  Receipt Date: 20220127
  Transmission Date: 20220423
  Serious: No
  Sender: FDA-Public Use
  Company Number: None

PATIENT
  Sex: Female

DRUGS (1)
  1. GLEEVEC [Suspect]
     Active Substance: IMATINIB MESYLATE
     Indication: Chronic myeloid leukaemia
     Dosage: FREQUENCY : DAILY;?
     Route: 048
     Dates: start: 202012

REACTIONS (7)
  - Diarrhoea [None]
  - Fatigue [None]
  - Pain [None]
  - Asthenia [None]
  - Loss of personal independence in daily activities [None]
  - Nausea [None]
  - Vomiting [None]
